FAERS Safety Report 17806739 (Version 1)
Quarter: 2020Q2

REPORT INFORMATION
  Report Type: Spontaneous
  Country: US (occurrence: US)
  Receive Date: 20200519
  Receipt Date: 20200519
  Transmission Date: 20200714
  Serious: Yes (Other)
  Sender: FDA-Public Use
  Company Number: None

PATIENT
  Age: 46 Year
  Sex: Female
  Weight: 121.95 kg

DRUGS (1)
  1. REMDESIVIR. [Suspect]
     Active Substance: REMDESIVIR
     Indication: COVID-19 PNEUMONIA
     Dosage: ?          OTHER FREQUENCY:ONCE;?
     Route: 042
     Dates: start: 20200515, end: 20200515

REACTIONS (6)
  - Transaminases increased [None]
  - Sepsis [None]
  - Shock [None]
  - Clinical trial participant [None]
  - Product use in unapproved indication [None]
  - Cholelithiasis [None]

NARRATIVE: CASE EVENT DATE: 20200515
